FAERS Safety Report 9637883 (Version 1)
Quarter: 2013Q4

REPORT INFORMATION
  Report Type: Report from Study
  Country: CA (occurrence: CA)
  Receive Date: 20131022
  Receipt Date: 20131022
  Transmission Date: 20140711
  Serious: Yes (Other)
  Sender: FDA-Public Use
  Company Number: CA-ROCHE-1291490

PATIENT
  Sex: Female
  Weight: 124.3 kg

DRUGS (10)
  1. RITUXAN [Suspect]
     Indication: STIFF PERSON SYNDROME
     Dosage: PREVIOUS DOSE : 21/JUL/2010.
     Route: 042
     Dates: start: 20100707
  2. ACTONEL [Concomitant]
  3. TOPIRAMATE [Concomitant]
  4. EPIVAL [Concomitant]
  5. DIAZEPAM [Concomitant]
  6. LIPITOR [Concomitant]
  7. LOMOTIL (CANADA) [Concomitant]
  8. LOPERAMIDE [Concomitant]
  9. DEPO-PROVERA [Concomitant]
  10. VITAMIN B12 [Concomitant]

REACTIONS (5)
  - Headache [Recovering/Resolving]
  - Vitamin D decreased [Unknown]
  - Nasopharyngitis [Unknown]
  - Musculoskeletal stiffness [Not Recovered/Not Resolved]
  - Blood test abnormal [Unknown]
